FAERS Safety Report 6248492-X (Version None)
Quarter: 2009Q2

REPORT INFORMATION
  Report Type: 
  Country: None (occurrence: None)
  Receive Date: 20090629
  Receipt Date: 20090624
  Transmission Date: 20091009
  Serious: Yes (Death, Life-Threatening, Other)
  Sender: FDA-Public Use
  Company Number: FR-BRISTOL-MYERS SQUIBB COMPANY-14642276

PATIENT
  Age: 15 Year
  Sex: Male

DRUGS (3)
  1. SPRYCEL [Suspect]
     Indication: CHRONIC MYELOID LEUKAEMIA
     Dates: start: 20090415, end: 20090522
  2. RADIOTHERAPY [Suspect]
     Dates: start: 20090520
  3. MYLOTARG [Concomitant]
     Dates: start: 20090303

REACTIONS (4)
  - CENTRAL NERVOUS SYSTEM MASS [None]
  - RADICULAR SYNDROME [None]
  - SUBDURAL HAEMATOMA [None]
  - THROMBOCYTOPENIA [None]
